FAERS Safety Report 11938338 (Version 3)
Quarter: 2016Q1

REPORT INFORMATION
  Report Type: Spontaneous
  Country: US (occurrence: US)
  Receive Date: 20160122
  Receipt Date: 20160211
  Transmission Date: 20160526
  Serious: Yes (Other)
  Sender: FDA-Public Use
  Company Number: US-ENDO PHARMACEUTICALS INC.-2015-005002

PATIENT
  Age: 70 Year
  Sex: Male
  Weight: 63.56 kg

DRUGS (3)
  1. FORTESTA [Suspect]
     Active Substance: TESTOSTERONE
     Indication: HYPOGONADISM
     Route: 061
  2. FORTESTA [Suspect]
     Active Substance: TESTOSTERONE
     Route: 061
  3. FORTESTA [Suspect]
     Active Substance: TESTOSTERONE
     Route: 061
     Dates: start: 2014

REACTIONS (2)
  - Blood testosterone decreased [Unknown]
  - Diabetes mellitus [Not Recovered/Not Resolved]

NARRATIVE: CASE EVENT DATE: 2015
